FAERS Safety Report 8094371-5 (Version None)
Quarter: 2012Q1

REPORT INFORMATION
  Report Type: 
  Country: None (occurrence: None)
  Receive Date: 20120130
  Receipt Date: 20120120
  Transmission Date: 20120608
  Serious: Yes (Life-Threatening, Hospitalization)
  Sender: FDA-Public Use
  Company Number: US-BAYER-2011-095977

PATIENT
  Age: 34 Year
  Sex: Female
  Weight: 151.93 kg

DRUGS (12)
  1. METFORMIN HCL [Concomitant]
     Dosage: 500 MG, BID
     Route: 048
  2. YAZ [Suspect]
     Dosage: UNK
     Dates: start: 20031001, end: 20041201
  3. YASMIN [Suspect]
     Dosage: UNK
     Dates: start: 20031001, end: 20041201
  4. AVANDIA [Concomitant]
     Dosage: 4 MG, UNK
     Route: 048
     Dates: start: 20041106
  5. PREVACID [Concomitant]
     Dosage: 30 MG, UNK
     Route: 048
     Dates: start: 20040616, end: 20050423
  6. ZYRTEC [Concomitant]
     Dosage: 10 MG, UNK
     Route: 048
     Dates: start: 20040416, end: 20050321
  7. HYDROCHLOROTHIAZIDE [Concomitant]
     Dosage: 25 MG, UNK
     Route: 048
     Dates: start: 20040820, end: 20041117
  8. DROSPIRENONE AND ETHINYL ESTRADIOL [Suspect]
  9. NASONEX [Concomitant]
     Route: 048
  10. MULTI-VITAMIN [Concomitant]
     Route: 048
  11. ASCORBIC ACID [Concomitant]
     Route: 048
  12. ATENOLOL [Concomitant]
     Dosage: 25 MG, UNK
     Route: 048
     Dates: start: 20040401, end: 20041128

REACTIONS (9)
  - GENERAL PHYSICAL HEALTH DETERIORATION [None]
  - PULMONARY EMBOLISM [None]
  - PAIN [None]
  - DEEP VEIN THROMBOSIS [None]
  - THROMBOSIS [None]
  - ANXIETY [None]
  - EMOTIONAL DISTRESS [None]
  - INJURY [None]
  - ANHEDONIA [None]
